FAERS Safety Report 9336679 (Version 4)
Quarter: 2013Q4

REPORT INFORMATION
  Report Type: Spontaneous
  Country: JP (occurrence: JP)
  Receive Date: 20130607
  Receipt Date: 20131015
  Transmission Date: 20140711
  Serious: Yes (Hospitalization)
  Sender: FDA-Public Use
  Company Number: PHHY2013JP030333

PATIENT
  Age: 74 Year
  Sex: Male
  Weight: 53 kg

DRUGS (3)
  1. GLIVEC [Suspect]
     Indication: CHRONIC MYELOID LEUKAEMIA
     Dosage: 200 MG, DAILY
     Route: 048
     Dates: start: 20120719, end: 20120801
  2. GLIVEC [Suspect]
     Dosage: 100 MG, DAILY
     Route: 048
     Dates: start: 20120815, end: 20120828
  3. GLIVEC [Suspect]
     Dosage: 200 MG, DAILY
     Route: 048
     Dates: start: 20120829, end: 20120925

REACTIONS (5)
  - Pneumothorax [Recovering/Resolving]
  - Interstitial lung disease [Recovering/Resolving]
  - Dyspnoea [Recovered/Resolved]
  - Cough [Unknown]
  - Rash generalised [Recovering/Resolving]
